FAERS Safety Report 4400800-8 (Version None)
Quarter: 2004Q3

REPORT INFORMATION
  Report Type: 
  Country: None (occurrence: None)
  Receive Date: 20040907
  Receipt Date: 20030612
  Transmission Date: 20050211
  Serious: No
  Sender: FDA-Public Use
  Company Number: US-BRISTOL-MYERS SQUIBB COMPANY-12299665

PATIENT
  Age: 47 Year
  Sex: Female
  Weight: 75 kg

DRUGS (3)
  1. COUMADIN [Suspect]
     Indication: ANTIPHOSPHOLIPID SYNDROME
     Dosage: DOSE VALUE: DOSE FLUCTUATES
     Route: 048
     Dates: start: 20020101
  2. OXYCONTIN [Concomitant]
  3. MULTIVITAMIN [Concomitant]

REACTIONS (7)
  - ASTHENIA [None]
  - CHILLS [None]
  - CONTUSION [None]
  - DIZZINESS [None]
  - FATIGUE [None]
  - INTERNATIONAL NORMALISED RATIO ABNORMAL [None]
  - PAIN [None]
